FAERS Safety Report 7419130-5 (Version None)
Quarter: 2011Q2

REPORT INFORMATION
  Report Type: 
  Country: None (occurrence: None)
  Receive Date: 20110415
  Receipt Date: 20110217
  Transmission Date: 20111010
  Serious: No
  Sender: FDA-Public Use
  Company Number: US-B.I. PHARMACEUTICALS,INC./RIDGEFIELD-2011-BP-05799BP

PATIENT
  Sex: Female

DRUGS (4)
  1. PRADAXA [Suspect]
     Indication: ATRIAL FIBRILLATION
     Dosage: 300 MG
     Route: 048
     Dates: start: 20101201
  2. LOTREL [Concomitant]
     Indication: HYPERTENSION
  3. ARYTHMOL [Concomitant]
     Indication: ATRIAL FIBRILLATION
     Dates: start: 20101201, end: 20110101
  4. VYTORIN [Concomitant]
     Indication: BLOOD CHOLESTEROL INCREASED

REACTIONS (4)
  - EPISTAXIS [None]
  - OESOPHAGEAL PAIN [None]
  - HAEMATOCHEZIA [None]
  - ARTHRALGIA [None]
